FAERS Safety Report 4786288-6 (Version None)
Quarter: 2005Q3

REPORT INFORMATION
  Report Type: 
  Country: None (occurrence: None)
  Receive Date: 20050928
  Receipt Date: 20050803
  Transmission Date: 20060218
  Serious: Yes (Hospitalization)
  Sender: FDA-Public Use
  Company Number: 2005AP000599

PATIENT
  Age: 78 Year
  Sex: Female

DRUGS (4)
  1. APO-CITALOPRAM (CITALOPRAM HYDROBROMIDE)  (20 MG) [Suspect]
     Indication: DEPRESSION
     Dosage: 20 MG; QD; PO
     Route: 048
     Dates: start: 20041120
  2. SYNTHROID [Concomitant]
  3. ATENOLOL [Concomitant]
  4. TRAZODONE [Concomitant]

REACTIONS (1)
  - PANCREATITIS [None]
